FAERS Safety Report 8515290-3 (Version None)
Quarter: 2012Q3

REPORT INFORMATION
  Report Type: 
  Country: None (occurrence: None)
  Receive Date: 20120717
  Receipt Date: 20120712
  Transmission Date: 20120928
  Serious: Yes (Life-Threatening, Hospitalization)
  Sender: FDA-Public Use
  Company Number: US-ASTRAZENECA-2012SE48698

PATIENT
  Age: 24574 Day
  Sex: Male
  Weight: 69.4 kg

DRUGS (5)
  1. TOPROL-XL [Suspect]
     Route: 048
  2. DEBROX [Concomitant]
     Dosage: 5 DROPS BID
  3. LIPITOR [Concomitant]
     Route: 048
  4. ZESTRIL [Suspect]
     Route: 048
  5. BRILINTA [Suspect]
     Route: 048

REACTIONS (3)
  - FATIGUE [None]
  - VENTRICULAR FIBRILLATION [None]
  - ELECTROCARDIOGRAM ST SEGMENT ELEVATION [None]
